FAERS Safety Report 17685013 (Version 1)
Quarter: 2020Q2

REPORT INFORMATION
  Report Type: Spontaneous
  Country: US (occurrence: US)
  Receive Date: 20200420
  Receipt Date: 20200420
  Transmission Date: 20200714
  Serious: Yes (Other)
  Sender: FDA-Public Use
  Company Number: US-CURIUM-200800361

PATIENT
  Age: 54 Year
  Sex: Female

DRUGS (8)
  1. ULTRA-TECHNEKOW DTE [Suspect]
     Active Substance: TECHNETIUM TC-99M SODIUM PERTECHNETATE
     Indication: CARDIAC STRESS TEST
     Dosage: UNK
     Dates: start: 20081210, end: 20081210
  2. ASTELIN [Concomitant]
     Active Substance: AZELASTINE HYDROCHLORIDE
     Indication: PRODUCT USED FOR UNKNOWN INDICATION
     Dosage: UNK
     Route: 065
  3. OPTIVAR [Concomitant]
     Active Substance: AZELASTINE HYDROCHLORIDE
     Indication: PRODUCT USED FOR UNKNOWN INDICATION
     Dosage: UNK
     Route: 065
  4. BENADRYL [Concomitant]
     Active Substance: DIPHENHYDRAMINE HYDROCHLORIDE
     Indication: HYPERSENSITIVITY
     Dosage: 25 MG, EVERY 4 HRS
     Route: 048
     Dates: start: 20081210
  5. PREDNISON [Concomitant]
     Active Substance: PREDNISONE
     Indication: PRODUCT USED FOR UNKNOWN INDICATION
     Dosage: UNK, AS NEEDED
     Route: 048
     Dates: start: 20081210
  6. PREDNISONE. [Concomitant]
     Active Substance: PREDNISONE
     Indication: HYPERSENSITIVITY
     Dosage: UNK, AS NEEDED
     Route: 030
     Dates: start: 20081210
  7. THALLOUS CHLORIDE TL 201 [Suspect]
     Active Substance: THALLOUS CHLORIDE TL-201
     Indication: CARDIAC STRESS TEST
     Dosage: UNK
     Route: 042
     Dates: start: 20081210, end: 20081210
  8. MYOVIEW [Concomitant]
     Active Substance: TECHNETIUM TC-99M TETROFOSMIN
     Indication: CARDIAC STRESS TEST
     Dosage: UNK
     Route: 042
     Dates: start: 20081210, end: 20081210

REACTIONS (14)
  - Throat tightness [Recovered/Resolved]
  - Hyperhidrosis [Recovered/Resolved]
  - Rash [Not Recovered/Not Resolved]
  - Wheezing [Unknown]
  - Erythema [Unknown]
  - Hypersensitivity [Not Recovered/Not Resolved]
  - Paraesthesia oral [Recovered/Resolved]
  - Genital burning sensation [Recovering/Resolving]
  - Asthma [Recovering/Resolving]
  - Pollakiuria [Recovered/Resolved]
  - Pruritus [Recovering/Resolving]
  - Pharyngeal swelling [Recovered/Resolved]
  - Cough [Unknown]
  - Blister [Recovered/Resolved]

NARRATIVE: CASE EVENT DATE: 20081210
